FAERS Safety Report 18943649 (Version 1)
Quarter: 2021Q1

REPORT INFORMATION
  Report Type: Spontaneous
  Country: US (occurrence: US)
  Receive Date: 20210226
  Receipt Date: 20210226
  Transmission Date: 20210420
  Serious: No
  Sender: FDA-Public Use
  Company Number: US-ALLERGAN-2010509US

PATIENT
  Sex: Male

DRUGS (3)
  1. SAVELLA [Suspect]
     Active Substance: MILNACIPRAN HYDROCHLORIDE
     Indication: CHRONIC FATIGUE SYNDROME
  2. AMOXICILLIN. [Concomitant]
     Active Substance: AMOXICILLIN
     Indication: TOOTH EXTRACTION
     Route: 048
  3. SAVELLA [Suspect]
     Active Substance: MILNACIPRAN HYDROCHLORIDE
     Indication: FIBROMYALGIA
     Dosage: 25 MG, BID
     Route: 048

REACTIONS (5)
  - Tooth extraction [Unknown]
  - Glossodynia [Recovered/Resolved]
  - Tongue erythema [Recovered/Resolved]
  - Fatigue [Recovered/Resolved]
  - Off label use [Unknown]
